FAERS Safety Report 8913466 (Version 1)
Quarter: 2012Q4

REPORT INFORMATION
  Report Type: 
  Country: JP (occurrence: JP)
  Receive Date: 20121119
  Receipt Date: 20121119
  Transmission Date: 20130627
  Serious: Yes (Hospitalization)
  Sender: FDA-Public Use
  Company Number: JP-BAYER-2012-117643

PATIENT
  Age: 76 Year
  Sex: Female

DRUGS (3)
  1. GLUCOBAY [Suspect]
     Dosage: UNK
     Route: 048
  2. SITAFLOXACIN [Suspect]
     Indication: URINARY TRACT INFECTION
     Dosage: UNK
     Route: 048
     Dates: start: 20111128
  3. METFORMIN [Interacting]
     Dosage: UNK
     Route: 048

REACTIONS (2)
  - Hypoglycaemic coma [Recovered/Resolved]
  - Drug interaction [None]
